FAERS Safety Report 25890188 (Version 1)
Quarter: 2025Q4

REPORT INFORMATION
  Report Type: Spontaneous
  Country: US (occurrence: US)
  Receive Date: 20251007
  Receipt Date: 20251007
  Transmission Date: 20260117
  Serious: Yes (Hospitalization, Other)
  Sender: Onesource Specialty Pharma
  Company Number: US-STRIDES ARCOLAB LIMITED-2025-ST-000137

PATIENT

DRUGS (4)
  1. PIPERACILLIN SODIUM\TAZOBACTAM SODIUM [Suspect]
     Active Substance: PIPERACILLIN SODIUM\TAZOBACTAM SODIUM
     Indication: Necrotising fasciitis
     Dosage: ONE DOSE OF PIPERACILLIN/TAZOBACTAM 3G (OF PIPERACILLIN)
     Route: 042
  2. VANCOMYCIN [Suspect]
     Active Substance: VANCOMYCIN
     Indication: Necrotising fasciitis
     Dosage: TWO DOSES OF IV VANCOMYCIN 1000MG
     Route: 042
  3. IBUPROFEN [Suspect]
     Active Substance: IBUPROFEN
     Indication: Necrotising fasciitis
     Dosage: ONE DOSE OF IBUPROFEN 400MG
     Route: 065
  4. CLINDAMYCIN [Suspect]
     Active Substance: CLINDAMYCIN
     Indication: Cellulitis staphylococcal
     Dosage: 40 MG/KG/DAY DIVIDED EVERY 8 HOURS
     Route: 065

REACTIONS (1)
  - Acute kidney injury [None]
